FAERS Safety Report 6791490-8 (Version None)
Quarter: 2010Q2

REPORT INFORMATION
  Report Type: 
  Country: None (occurrence: None)
  Receive Date: 20100624
  Receipt Date: 20080707
  Transmission Date: 20101027
  Serious: Yes (Other)
  Sender: FDA-Public Use
  Company Number: US-PFIZER INC-2008057013

PATIENT
  Sex: Male
  Weight: 45.4 kg

DRUGS (8)
  1. GEODON [Suspect]
     Indication: AGITATION
     Route: 030
  2. GEODON [Suspect]
     Route: 048
     Dates: start: 20080630
  3. TYLENOL [Concomitant]
  4. FIORICET [Concomitant]
  5. ATIVAN [Concomitant]
  6. THYROID TAB [Concomitant]
  7. POLYETHYLENE GLYCOL [Concomitant]
  8. TRAZODONE HYDROCHLORIDE [Concomitant]

REACTIONS (8)
  - AGITATION [None]
  - ANAEMIA [None]
  - BLOOD ALKALINE PHOSPHATASE DECREASED [None]
  - BLOOD CREATININE DECREASED [None]
  - DRUG ADMINISTRATION ERROR [None]
  - DRUG SCREEN POSITIVE [None]
  - DYSTONIA [None]
  - PLATELET COUNT DECREASED [None]
